FAERS Safety Report 20676653 (Version 1)
Quarter: 2022Q2

REPORT INFORMATION
  Report Type: Spontaneous
  Country: US (occurrence: US)
  Receive Date: 20220406
  Receipt Date: 20220406
  Transmission Date: 20220721
  Serious: Yes (Death, Hospitalization, Other)
  Sender: FDA-Public Use
  Company Number: US-JAZZ-2022-US-010121

PATIENT

DRUGS (1)
  1. ASPARAGINASE [Suspect]
     Active Substance: ASPARAGINASE
     Indication: Non-Hodgkin^s lymphoma
     Dosage: UNK

REACTIONS (18)
  - Respiratory failure [Fatal]
  - Sepsis [Fatal]
  - Pancreatitis [Unknown]
  - Hepatotoxicity [Unknown]
  - Hypoxia [Unknown]
  - Acute respiratory distress syndrome [Unknown]
  - Hyperglycaemia [Unknown]
  - Embolism [Unknown]
  - Cerebrovascular accident [Unknown]
  - Infection [Unknown]
  - Pyrexia [Unknown]
  - Hypertension [Unknown]
  - Hypotension [Unknown]
  - Seizure [Unknown]
  - Ileus [Unknown]
  - Anaphylactic reaction [Unknown]
  - Hyponatraemia [Unknown]
  - Constipation [Unknown]
